FAERS Safety Report 13584978 (Version 1)
Quarter: 2017Q2

REPORT INFORMATION
  Report Type: Spontaneous
  Country: US (occurrence: US)
  Receive Date: 20170526
  Receipt Date: 20170526
  Transmission Date: 20170830
  Serious: No
  Sender: FDA-Public Use
  Company Number: US-BAYER-2017-099865

PATIENT
  Sex: Female

DRUGS (1)
  1. MIRALAX [Suspect]
     Active Substance: POLYETHYLENE GLYCOL 3350
     Indication: ADHESION
     Dosage: 5 DF, QD
     Route: 048

REACTIONS (5)
  - Muscle spasms [Unknown]
  - Incorrect drug administration duration [Unknown]
  - Off label use [Unknown]
  - Unevaluable event [Unknown]
  - Extra dose administered [Unknown]
